FAERS Safety Report 9520102 (Version 1)
Quarter: 2013Q3

REPORT INFORMATION
  Report Type: Report from Study
  Country: US (occurrence: US)
  Receive Date: 20130912
  Receipt Date: 20130912
  Transmission Date: 20140515
  Serious: No
  Sender: FDA-Public Use
  Company Number: PHEH2013US019058

PATIENT
  Age: 44 Year
  Sex: Female
  Weight: 46.26 kg

DRUGS (8)
  1. TASIGNA [Suspect]
     Route: 048
  2. FLUTICASONE [Concomitant]
  3. FUROSEMIDE [Concomitant]
  4. METFORMIN [Concomitant]
  5. LATANOPROST [Concomitant]
  6. LOSARTAN POTASSIUM [Concomitant]
  7. DORZOLAMID+TIMOLOL ARCANA [Concomitant]
  8. IRON [Concomitant]

REACTIONS (2)
  - Headache [Unknown]
  - Back pain [Unknown]
